FAERS Safety Report 6006065-8 (Version None)
Quarter: 2008Q4

REPORT INFORMATION
  Report Type: 
  Country: None (occurrence: None)
  Receive Date: 20081217
  Receipt Date: 20081204
  Transmission Date: 20090506
  Serious: Yes (Hospitalization, Other)
  Sender: FDA-Public Use
  Company Number: US-ELI_LILLY_AND_COMPANY-US200812001786

PATIENT
  Sex: Female
  Weight: 136 kg

DRUGS (13)
  1. BYETTA [Suspect]
     Dosage: 5 UG, 2/D
     Route: 058
     Dates: start: 20070901
  2. METFORMIN HCL [Concomitant]
     Dosage: 1000 MG, 2/D
     Route: 048
  3. PRILOSEC [Concomitant]
     Dosage: 40 MG, DAILY (1/D)
     Route: 048
  4. GLUCOSAMINE [Concomitant]
     Dosage: 1500 MG, 2/D
     Route: 048
  5. ERYTHROMYCIN [Concomitant]
     Dosage: 50 MG, 2/D
     Route: 048
  6. LORTAB [Concomitant]
     Dosage: UNK, AS NEEDED
     Route: 048
  7. METHADONE HCL [Concomitant]
     Dosage: 10 MG, 2/D
     Route: 048
  8. RESTORIL [Concomitant]
     Indication: INSOMNIA
     Dosage: 15 MG, AS NEEDED
     Route: 048
  9. TRAZODONE HCL [Concomitant]
     Dosage: 25 MG, EACH EVENING
     Route: 048
  10. VALIUM [Concomitant]
     Dosage: 5 MG, 3/D
     Route: 065
  11. CYMBALTA [Concomitant]
     Dosage: 30 MG, DAILY (1/D)
     Route: 048
  12. EFFEXOR [Concomitant]
     Dosage: 300 MG, DAILY (1/D)
     Route: 048
  13. HYZAAR [Concomitant]
     Dosage: UNK, DAILY (1/D)
     Route: 048

REACTIONS (3)
  - CONSTIPATION [None]
  - HAEMATOCHEZIA [None]
  - PANCREATITIS [None]
